FAERS Safety Report 9563681 (Version 1)
Quarter: 2013Q3

REPORT INFORMATION
  Report Type: Spontaneous
  Country: FR (occurrence: None)
  Receive Date: 20130926
  Receipt Date: 20130926
  Transmission Date: 20140515
  Serious: Yes (Life-Threatening, Hospitalization)
  Sender: FDA-Public Use
  Company Number: 2135225-2013-00095

PATIENT
  Age: 40 Year
  Sex: Female

DRUGS (1)
  1. AETOXISCLEROL TAMPONNE 0.5% [Suspect]
     Indication: VARICOSE VEIN
     Route: 042
     Dates: start: 201210

REACTIONS (2)
  - Transient ischaemic attack [None]
  - Hemianopia homonymous [None]
